FAERS Safety Report 18678292 (Version 6)
Quarter: 2021Q4

REPORT INFORMATION
  Report Type: Report from Study
  Country: US (occurrence: US)
  Receive Date: 20201229
  Receipt Date: 20211204
  Transmission Date: 20220304
  Serious: No
  Sender: FDA-Public Use
  Company Number: NVSC2020US338551

PATIENT

DRUGS (1)
  1. KESIMPTA [Suspect]
     Active Substance: OFATUMUMAB
     Indication: Multiple sclerosis
     Dosage: UNK
     Route: 065

REACTIONS (2)
  - Wrong technique in product usage process [Unknown]
  - Accidental exposure to product [Unknown]
